FAERS Safety Report 23970461 (Version 2)
Quarter: 2024Q3

REPORT INFORMATION
  Report Type: Spontaneous
  Country: PT (occurrence: PT)
  Receive Date: 20240613
  Receipt Date: 20240708
  Transmission Date: 20241017
  Serious: Yes (Hospitalization)
  Sender: TEVA
  Company Number: PT-TEVA-VS-3207247

PATIENT
  Age: 64 Year
  Sex: Female

DRUGS (1)
  1. FLUOROURACIL [Suspect]
     Active Substance: FLUOROURACIL
     Indication: Rectal adenocarcinoma
     Route: 065

REACTIONS (7)
  - Cardiotoxicity [Recovering/Resolving]
  - Atrial fibrillation [Recovering/Resolving]
  - Pulmonary embolism [Recovering/Resolving]
  - Pulmonary hypertension [Recovering/Resolving]
  - Myocardial fibrosis [Recovering/Resolving]
  - Cardiac failure acute [Recovering/Resolving]
  - Myocardial fibrosis [Recovering/Resolving]
